FAERS Safety Report 16728323 (Version 1)
Quarter: 2019Q3

REPORT INFORMATION
  Report Type: Other
  Country: GB (occurrence: GB)
  Receive Date: 20190822
  Receipt Date: 20190822
  Transmission Date: 20191005
  Serious: Yes (Other)
  Sender: FDA-Public Use
  Company Number: GB-ASTELLAS-2019US032935

PATIENT
  Age: 42 Year
  Sex: Male

DRUGS (2)
  1. MIRABEGRON [Suspect]
     Active Substance: MIRABEGRON
     Indication: POLLAKIURIA
     Route: 065
     Dates: start: 20190407
  2. DARIFENACIN. [Suspect]
     Active Substance: DARIFENACIN
     Indication: POLLAKIURIA
     Route: 065
     Dates: start: 20190407, end: 20190501

REACTIONS (1)
  - Gastrooesophageal reflux disease [Unknown]
